FAERS Safety Report 7911514-1 (Version None)
Quarter: 2011Q4

REPORT INFORMATION
  Report Type: 
  Country: None (occurrence: None)
  Receive Date: 20111114
  Receipt Date: 20111103
  Transmission Date: 20120403
  Serious: Yes (Hospitalization)
  Sender: FDA-Public Use
  Company Number: US-SANOFI-AVENTIS-2011SA073001

PATIENT
  Sex: Female

DRUGS (8)
  1. PLAVIX [Suspect]
     Route: 048
     Dates: start: 20110501
  2. ASPIRIN [Suspect]
     Indication: DIVERTICULITIS
     Route: 065
     Dates: start: 20100707, end: 20110318
  3. ALL OTHER THERAPEUTIC PRODUCTS [Suspect]
     Dates: start: 20100708
  4. ROSUVASTATIN CALCIUM [Concomitant]
  5. PLAVIX [Suspect]
     Route: 048
     Dates: start: 20100709, end: 20110318
  6. ASPIRIN [Suspect]
     Route: 065
     Dates: start: 20110501
  7. VALSARTAN [Concomitant]
  8. PROTONIX [Concomitant]
     Route: 042

REACTIONS (1)
  - DIVERTICULITIS [None]
